FAERS Safety Report 9192769 (Version 2)
Quarter: 2013Q2

REPORT INFORMATION
  Report Type: Spontaneous
  Country: US (occurrence: US)
  Receive Date: 20130327
  Receipt Date: 20130404
  Transmission Date: 20140414
  Serious: Yes (Congenital Anomaly, Other)
  Sender: FDA-Public Use
  Company Number: US-PFIZER INC-2013096174

PATIENT
  Sex: Female

DRUGS (4)
  1. SERTRALINE HCL [Suspect]
     Indication: DEPRESSION
     Dosage: UNK
     Route: 064
     Dates: start: 20100511, end: 201102
  2. ZOLOFT [Suspect]
     Dosage: UNK
     Route: 064
  3. PRENATABS [Concomitant]
     Dosage: UNK
     Route: 064
  4. NICOTINE [Concomitant]
     Dosage: 14MG/24HR, PATCH
     Route: 064

REACTIONS (3)
  - Foetal exposure during pregnancy [Unknown]
  - Cleft lip [Unknown]
  - Cleft palate [Unknown]
